FAERS Safety Report 5567717-7 (Version None)
Quarter: 2007Q4

REPORT INFORMATION
  Report Type: 
  Country: None (occurrence: None)
  Receive Date: 20071210
  Receipt Date: 20071128
  Transmission Date: 20080405
  Serious: Yes (Other)
  Sender: FDA-Public Use
  Company Number: AEJPN200700267

PATIENT
  Age: 20 Year
  Sex: Female

DRUGS (9)
  1. IMMUNE GLOBULIN INTRAVENOUS (HUMAN) [Suspect]
     Indication: INFECTION
  2. ANTITHROMBIN III (MANUFACTURER UNKNOWN) (ANTITHROMBIN III (HUMAN)) [Suspect]
     Indication: DISSEMINATED INTRAVASCULAR COAGULATION
  3. GABEXATE MESILATE (GABEXATE MESILATE) [Suspect]
     Indication: DISSEMINATED INTRAVASCULAR COAGULATION
  4. SIVELESTAT SODIUM (SILVELESTAT SODIUM) [Suspect]
     Indication: PROPHYLAXIS
  5. HYDROCORTISONE [Suspect]
     Indication: PROPHYLAXIS
  6. ANTIBIOTICS (ANTIBIOTICS) [Suspect]
     Indication: ESCHERICHIA SEPSIS
  7. PLATELETS [Concomitant]
  8. FRESH FROZEN PLASMA [Concomitant]
  9. ANTIBIOTICS [Concomitant]

REACTIONS (2)
  - PARESIS [None]
  - RENAL INFARCT [None]
